FAERS Safety Report 6595878-X (Version None)
Quarter: 2010Q1

REPORT INFORMATION
  Report Type: 
  Country: None (occurrence: None)
  Receive Date: 20100216
  Receipt Date: 20100202
  Transmission Date: 20100710
  Serious: Yes (Other)
  Sender: FDA-Public Use
  Company Number: 09-002051

PATIENT
  Age: 65 Year
  Sex: Female
  Weight: 49.9 kg

DRUGS (1)
  1. FEMRING [Suspect]
     Indication: HORMONE REPLACEMENT THERAPY
     Dosage: 0.05 MG, QD, VAGINAL
     Route: 067
     Dates: start: 20070101, end: 20070101

REACTIONS (15)
  - DRUG INEFFECTIVE [None]
  - EMOTIONAL DISORDER [None]
  - FALL [None]
  - HEADACHE [None]
  - HOT FLUSH [None]
  - INSOMNIA [None]
  - MENTAL IMPAIRMENT [None]
  - MIGRAINE WITH AURA [None]
  - NAUSEA [None]
  - PAIN [None]
  - ROAD TRAFFIC ACCIDENT [None]
  - SPINAL COLUMN INJURY [None]
  - TOOTH ABSCESS [None]
  - VULVOVAGINAL DRYNESS [None]
  - VULVOVAGINAL MYCOTIC INFECTION [None]
